FAERS Safety Report 5693111-4 (Version None)
Quarter: 2008Q2

REPORT INFORMATION
  Report Type: 
  Country: None (occurrence: None)
  Receive Date: 20080402
  Receipt Date: 20080402
  Transmission Date: 20081010
  Serious: Yes (Life-Threatening, Hospitalization, Disabling, Other)
  Sender: FDA-Public Use
  Company Number: None

PATIENT
  Age: 72 Year
  Sex: Female

DRUGS (6)
  1. FOSAMAX [Suspect]
     Indication: OSTEOPOROSIS
     Dosage: 1 QWK PO
     Route: 048
  2. ACTONEL [Suspect]
     Dosage: 1 QWK PO
     Route: 048
  3. PLAVIX [Concomitant]
  4. LIPITOR [Concomitant]
  5. ESTRACE [Concomitant]
  6. ALLOPURINOL [Concomitant]

REACTIONS (2)
  - JAW DISORDER [None]
  - PAIN [None]
